FAERS Safety Report 25680111 (Version 1)
Quarter: 2025Q3

REPORT INFORMATION
  Report Type: Spontaneous
  Country: BR (occurrence: BR)
  Receive Date: 20250814
  Receipt Date: 20250814
  Transmission Date: 20251020
  Serious: Yes (Other)
  Sender: TAKEDA
  Company Number: BR-TAKEDA-2025TUS069415

PATIENT
  Sex: Female

DRUGS (2)
  1. LISDEXAMFETAMINE DIMESYLATE [Suspect]
     Active Substance: LISDEXAMFETAMINE DIMESYLATE
     Indication: Attention deficit hyperactivity disorder
  2. ZOLPIDEM [Suspect]
     Active Substance: ZOLPIDEM TARTRATE
     Indication: Product used for unknown indication

REACTIONS (15)
  - Bipolar disorder [Unknown]
  - Toxicity to various agents [Unknown]
  - Theft [Unknown]
  - Mental disorder [Unknown]
  - Behaviour disorder [Unknown]
  - Mental fatigue [Unknown]
  - Panic attack [Unknown]
  - Amnesia [Unknown]
  - Emotional disorder [Unknown]
  - Accident [Unknown]
  - Burnout syndrome [Unknown]
  - Personality disorder [Unknown]
  - Road traffic accident [Unknown]
  - Intentional product misuse [Unknown]
  - Fatigue [Unknown]
